FAERS Safety Report 8558939-1 (Version None)
Quarter: 2012Q3

REPORT INFORMATION
  Report Type: 
  Country: None (occurrence: None)
  Receive Date: 20120802
  Receipt Date: 20120727
  Transmission Date: 20120928
  Serious: Yes (Hospitalization, Other)
  Sender: FDA-Public Use
  Company Number: US-AMGEN-USASP2012047208

PATIENT
  Age: 59 Year
  Sex: Female

DRUGS (1)
  1. ENBREL [Suspect]
     Indication: RHEUMATOID ARTHRITIS
     Dosage: 50 MG, QWK
     Dates: start: 20060601

REACTIONS (9)
  - UPPER-AIRWAY COUGH SYNDROME [None]
  - BONE SWELLING [None]
  - RHEUMATOID LUNG [None]
  - ARTHRALGIA [None]
  - BREAST DISORDER [None]
  - LYMPHADENOPATHY [None]
  - BLOOD GLUCOSE INCREASED [None]
  - ASTHMA [None]
  - HEAD DISCOMFORT [None]
